FAERS Safety Report 19819427 (Version 1)
Quarter: 2021Q3

REPORT INFORMATION
  Report Type: Spontaneous
  Country: JP (occurrence: JP)
  Receive Date: 20210913
  Receipt Date: 20210913
  Transmission Date: 20211014
  Serious: Yes (Other)
  Sender: FDA-Public Use
  Company Number: JP-JNJFOC-20200930995

PATIENT
  Age: 72 Year
  Sex: Male

DRUGS (5)
  1. ACTEMRA [Concomitant]
     Active Substance: TOCILIZUMAB
     Route: 065
  2. IGURATIMOD [Concomitant]
     Active Substance: IGURATIMOD
     Route: 065
  3. REMICADE [Suspect]
     Active Substance: INFLIXIMAB
     Indication: RHEUMATOID ARTHRITIS
     Route: 042
  4. PREDNISOLONE. [Concomitant]
     Active Substance: PREDNISOLONE
     Route: 065
  5. METHOTREXATE. [Suspect]
     Active Substance: METHOTREXATE
     Indication: RHEUMATOID ARTHRITIS
     Route: 048

REACTIONS (1)
  - Lymphoproliferative disorder [Unknown]
